FAERS Safety Report 8035474-0 (Version None)
Quarter: 2012Q1

REPORT INFORMATION
  Report Type: 
  Country: None (occurrence: None)
  Receive Date: 20120110
  Receipt Date: 20120110
  Transmission Date: 20120608
  Serious: Yes (Other)
  Sender: FDA-Public Use
  Company Number: None

PATIENT
  Age: 66 Year
  Sex: Male

DRUGS (4)
  1. REVLIMID [Suspect]
     Indication: MULTIPLE MYELOMA
     Dosage: REVLIMID 25 MG DAILY X21D/28D ORALLY
     Route: 048
     Dates: start: 20111215, end: 20111230
  2. CITALOPRAM [Concomitant]
  3. PROCHLORPERAZINE [Concomitant]
  4. ATENOLOL [Concomitant]

REACTIONS (2)
  - HAEMOGLOBIN DECREASED [None]
  - NEUTROPENIA [None]
